FAERS Safety Report 7789137-7 (Version None)
Quarter: 2011Q3

REPORT INFORMATION
  Report Type: 
  Country: None (occurrence: None)
  Receive Date: 20110928
  Receipt Date: 20110913
  Transmission Date: 20111222
  Serious: Yes (Disabling)
  Sender: FDA-Public Use
  Company Number: FRP11000264

PATIENT
  Age: 71 Year
  Sex: Female

DRUGS (4)
  1. ACTONEL [Suspect]
     Indication: OSTEOPOROSIS
     Dosage: 35 MG, 1/WEEK, ORAL
     Route: 048
     Dates: start: 20041101
  2. UVEDOSE (COLECALCIFEROL) [Concomitant]
  3. ACTONEL [Suspect]
     Indication: PRODUCT USED FOR UNKNOWN INDICATION
     Dosage: 75 MG, 2 CD/MONTH, ORAL : 35 MG, 1/WEEK, ORAL
     Route: 048
     Dates: start: 20090901, end: 20110601
  4. LEVOTHYROXINE SODIUM [Concomitant]

REACTIONS (7)
  - PAIN IN JAW [None]
  - FACE OEDEMA [None]
  - MUSCULAR WEAKNESS [None]
  - FALL [None]
  - NAUSEA [None]
  - MUSCLE SPASMS [None]
  - MYALGIA [None]
